FAERS Safety Report 23246381 (Version 4)
Quarter: 2024Q2

REPORT INFORMATION
  Report Type: Spontaneous
  Country: US (occurrence: US)
  Receive Date: 20231130
  Receipt Date: 20240424
  Transmission Date: 20240716
  Serious: Yes (Hospitalization, Other)
  Sender: FDA-Public Use
  Company Number: US-SA-SAC20230816001239

PATIENT
  Age: 61 Year
  Sex: Female

DRUGS (41)
  1. DUPIXENT [Suspect]
     Active Substance: DUPILUMAB
     Indication: Asthma
     Dosage: UNK
     Dates: start: 2020
  2. DUPIXENT [Suspect]
     Active Substance: DUPILUMAB
     Dosage: 300 MG, QOW
     Route: 058
     Dates: start: 202301
  3. DUPIXENT [Suspect]
     Active Substance: DUPILUMAB
     Dosage: 300 MG, QOW
     Route: 058
  4. FUROSEMIDE [Concomitant]
     Active Substance: FUROSEMIDE
  5. GABAPENTIN [Concomitant]
     Active Substance: GABAPENTIN
  6. GABAPENTIN [Concomitant]
     Active Substance: GABAPENTIN
  7. TRAMADOL HCL [Concomitant]
     Active Substance: TRAMADOL HYDROCHLORIDE
  8. ALBUTEROL SULFATE [Concomitant]
     Active Substance: ALBUTEROL SULFATE
  9. ALBUTEROL SULFATE [Concomitant]
     Active Substance: ALBUTEROL SULFATE
  10. AZELASTINE HYDROCHLORIDE [Concomitant]
     Active Substance: AZELASTINE HYDROCHLORIDE
  11. CLONIDINE HYDROCHLORIDE [Concomitant]
     Active Substance: CLONIDINE HYDROCHLORIDE
  12. FOLIC ACID [Concomitant]
     Active Substance: FOLIC ACID
  13. FOLIC ACID [Concomitant]
     Active Substance: FOLIC ACID
     Dosage: UNK
  14. ESCITALOPRAM [Concomitant]
     Active Substance: ESCITALOPRAM OXALATE
  15. VALSARTAN [Concomitant]
     Active Substance: VALSARTAN
  16. VITAMIN D NOS [Concomitant]
     Active Substance: VITAMIN D NOS
  17. CLONAZEPAM [Concomitant]
     Active Substance: CLONAZEPAM
  18. METFORMIN HYDROCHLORIDE [Concomitant]
     Active Substance: METFORMIN HYDROCHLORIDE
  19. MONTELUKAST [Concomitant]
     Active Substance: MONTELUKAST SODIUM
  20. SIMVASTATIN [Concomitant]
     Active Substance: SIMVASTATIN
  21. VENTOLIN HFA [Concomitant]
     Active Substance: ALBUTEROL SULFATE
  22. BACLOFEN [Concomitant]
     Active Substance: BACLOFEN
  23. FLUTICASONE PROPIONATE [Concomitant]
     Active Substance: FLUTICASONE PROPIONATE
  24. AMMONIUM LACTATE [Concomitant]
     Active Substance: AMMONIUM LACTATE
  25. BUPRENORPHINE [Concomitant]
     Active Substance: BUPRENORPHINE
  26. FERROUS SULFATE [Concomitant]
     Active Substance: FERROUS SULFATE
  27. CHLORTHALIDONE [Concomitant]
     Active Substance: CHLORTHALIDONE
  28. LACTULOSE [Concomitant]
     Active Substance: LACTULOSE
     Dosage: UNK
  29. LORATADINE [Concomitant]
     Active Substance: LORATADINE
     Dosage: UNK
  30. MELOXICAM [Concomitant]
     Active Substance: MELOXICAM
     Dosage: UNK
  31. OLOPATADINE [Concomitant]
     Active Substance: OLOPATADINE
     Dosage: UNK
  32. TYLENOL 8HR [Concomitant]
     Active Substance: ACETAMINOPHEN
     Dosage: UNK
  33. VITAMIN B COMPLEX [Concomitant]
     Active Substance: CYANOCOBALAMIN\DEXPANTHENOL\NIACINAMIDE\PYRIDOXINE HYDROCHLORIDE\RIBOFLAVIN 5^-PHOSPHATE SODIUM\THIA
     Dosage: UNK
  34. VITAMIN C [Concomitant]
     Active Substance: ASCORBIC ACID
     Dosage: UNK
  35. ASPIRIN [Concomitant]
     Active Substance: ASPIRIN
     Dosage: UNK
  36. CARVEDILOL [Concomitant]
     Active Substance: CARVEDILOL
     Dosage: UNK
  37. METHOTREXATE [Concomitant]
     Active Substance: METHOTREXATE
  38. PREDNISONE [Concomitant]
     Active Substance: PREDNISONE
  39. AZELASTINE [Concomitant]
     Active Substance: AZELASTINE\AZELASTINE HYDROCHLORIDE
  40. CHLORTHALIDONE [Concomitant]
     Active Substance: CHLORTHALIDONE
  41. PROBIOTICS NOS [Concomitant]
     Active Substance: PROBIOTICS NOS

REACTIONS (12)
  - Fall [Unknown]
  - Neuropathy peripheral [Unknown]
  - Peripheral swelling [Not Recovered/Not Resolved]
  - Lymphoedema [Not Recovered/Not Resolved]
  - Weight increased [Not Recovered/Not Resolved]
  - Pain in extremity [Not Recovered/Not Resolved]
  - Taste disorder [Not Recovered/Not Resolved]
  - Drug hypersensitivity [Unknown]
  - Arthralgia [Unknown]
  - Gout [Unknown]
  - Arthralgia [Unknown]
  - Radiculopathy [Unknown]

NARRATIVE: CASE EVENT DATE: 20200101
